FAERS Safety Report 4365124-6 (Version None)
Quarter: 2004Q2

REPORT INFORMATION
  Report Type: 
  Country: None (occurrence: None)
  Receive Date: 20040521
  Receipt Date: 20040506
  Transmission Date: 20050107
  Serious: Yes (Death)
  Sender: FDA-Public Use
  Company Number: TNZUK200400055

PATIENT
  Age: 80 Year
  Sex: Female
  Weight: 82 kg

DRUGS (5)
  1. INNOHEP (INJECTION) (TINZAPRIN SODIUM INJECTION) [Suspect]
     Indication: DEEP VEIN THROMBOSIS
     Dosage: 0.7ML DAILY (14000 IU, 1 IN 1 D), SUBCUTANEOUS
     Route: 058
     Dates: start: 20040310, end: 20040314
  2. THYROXINE (LEVOTHYROXINE SODIUM) [Concomitant]
  3. ATORVASTATIN (ATORVASTATIN) [Concomitant]
  4. PREDNISOLONE [Concomitant]
  5. AMITRIPTYLINE HCL [Concomitant]

REACTIONS (5)
  - ABDOMINAL MASS [None]
  - MULTI-ORGAN FAILURE [None]
  - PULMONARY EMBOLISM [None]
  - RETROPERITONEAL ABSCESS [None]
  - SEPSIS [None]
